FAERS Safety Report 5340831-7 (Version None)
Quarter: 2007Q2

REPORT INFORMATION
  Report Type: 
  Country: None (occurrence: None)
  Receive Date: 20070405
  Receipt Date: 20070202
  Transmission Date: 20071010
  Serious: No
  Sender: FDA-Public Use
  Company Number: US200702000484

PATIENT
  Age: 52 Year
  Sex: Male

DRUGS (8)
  1. CYMBALTA [Suspect]
     Indication: NEUROPATHY
     Dosage: 30 MG
     Dates: start: 20070116
  2. CIALIS [Suspect]
     Dates: start: 20060101
  3. PROVIGIL [Concomitant]
  4. METOPROLOL TARTRATE [Concomitant]
  5. GEMFIBROZIL [Concomitant]
  6. FERROUS SULFATE TAB [Concomitant]
  7. ASPIRIN [Concomitant]
  8. MULTIVITAMIN [Concomitant]

REACTIONS (3)
  - INSOMNIA [None]
  - LOGORRHOEA [None]
  - TACHYCARDIA [None]
